FAERS Safety Report 8624100-5 (Version None)
Quarter: 2012Q3

REPORT INFORMATION
  Report Type: 
  Country: None (occurrence: None)
  Receive Date: 20120827
  Receipt Date: 20120816
  Transmission Date: 20120928
  Serious: Yes (Hospitalization, Other)
  Sender: FDA-Public Use
  Company Number: US-ASTRAZENECA-2012SE57848

PATIENT
  Age: 53 Year
  Sex: Female
  Weight: 84.4 kg

DRUGS (9)
  1. DEPAKOTE [Concomitant]
  2. TRIZIDINE [Concomitant]
  3. LEVOTHROID [Concomitant]
  4. PRAVASTATIN [Concomitant]
     Indication: BLOOD CHOLESTEROL ABNORMAL
  5. LEVOTHYROXINE SODIUM [Concomitant]
  6. SEROQUEL [Suspect]
     Indication: BIPOLAR DISORDER
     Route: 048
     Dates: start: 20020101
  7. LAXATIVE [Concomitant]
  8. TRAMADOL HCL [Concomitant]
     Indication: PAIN
  9. LISINOPRIL [Concomitant]
     Indication: HYPERTENSION

REACTIONS (2)
  - INTERVERTEBRAL DISC PROTRUSION [None]
  - ABASIA [None]
